FAERS Safety Report 16552526 (Version 1)
Quarter: 2019Q3

REPORT INFORMATION
  Report Type: Spontaneous
  Country: JP (occurrence: JP)
  Receive Date: 20190710
  Receipt Date: 20190710
  Transmission Date: 20191004
  Serious: Yes (Other)
  Sender: FDA-Public Use
  Company Number: PHHY2019JP155077

PATIENT
  Age: 19 Year
  Sex: Male

DRUGS (7)
  1. CISPLATIN. [Suspect]
     Active Substance: CISPLATIN
     Indication: MEDIASTINUM NEOPLASM
     Dosage: UNK
     Route: 065
  2. CARBOPLATIN. [Suspect]
     Active Substance: CARBOPLATIN
     Indication: MEDIASTINUM NEOPLASM
     Dosage: UNK
     Route: 065
  3. ETOPOSIDE. [Suspect]
     Active Substance: ETOPOSIDE
     Indication: MEDIASTINUM NEOPLASM
     Dosage: UNK
     Route: 065
  4. VINCRISTINE [Suspect]
     Active Substance: VINCRISTINE
     Indication: MEDIASTINUM NEOPLASM
     Dosage: UNK
     Route: 065
  5. VINBLASTINE SULFATE. [Suspect]
     Active Substance: VINBLASTINE SULFATE
     Indication: MEDIASTINUM NEOPLASM
     Dosage: UNK
     Route: 065
  6. IFOSFAMIDE. [Suspect]
     Active Substance: IFOSFAMIDE
     Indication: MEDIASTINUM NEOPLASM
     Dosage: UNK
     Route: 065
  7. IRINOTECAN [Suspect]
     Active Substance: IRINOTECAN
     Indication: MEDIASTINUM NEOPLASM
     Dosage: UNK
     Route: 065

REACTIONS (4)
  - Aplasia [Unknown]
  - Product use in unapproved indication [Unknown]
  - Pancytopenia [Unknown]
  - Myelodysplastic syndrome [Unknown]
